FAERS Safety Report 13404907 (Version 1)
Quarter: 2017Q2

REPORT INFORMATION
  Report Type: Spontaneous
  Country: US (occurrence: US)
  Receive Date: 20170405
  Receipt Date: 20170405
  Transmission Date: 20170830
  Serious: Yes (Hospitalization, Other)
  Sender: FDA-Public Use
  Company Number: None

PATIENT
  Age: 67 Year
  Sex: Male
  Weight: 82.35 kg

DRUGS (1)
  1. DARZALEX [Suspect]
     Active Substance: DARATUMUMAB

REACTIONS (5)
  - Infusion related reaction [None]
  - Blood pressure decreased [None]
  - Vomiting [None]
  - Dyspepsia [None]
  - Oxygen saturation decreased [None]

NARRATIVE: CASE EVENT DATE: 20170405
